FAERS Safety Report 7118554-3 (Version None)
Quarter: 2010Q4

REPORT INFORMATION
  Report Type: 
  Country: None (occurrence: None)
  Receive Date: 20101123
  Receipt Date: 20101116
  Transmission Date: 20110411
  Serious: Yes (Disabling)
  Sender: FDA-Public Use
  Company Number: PT-JNJFOC-20101106135

PATIENT
  Sex: Male

DRUGS (4)
  1. INTELENCE [Suspect]
     Indication: HIV INFECTION
     Route: 048
  2. DARUNAVIR [Concomitant]
     Indication: HIV INFECTION
  3. RALTEGRAVIR [Concomitant]
     Indication: HIV INFECTION
  4. RITONAVIR [Concomitant]
     Indication: HIV INFECTION

REACTIONS (2)
  - ARTHRALGIA [None]
  - RASH [None]
